FAERS Safety Report 10207742 (Version 1)
Quarter: 2014Q2

REPORT INFORMATION
  Report Type: Spontaneous
  Country: US (occurrence: US)
  Receive Date: 20140530
  Receipt Date: 20140530
  Transmission Date: 20141212
  Serious: No
  Sender: FDA-Public Use
  Company Number: US-GLAXOSMITHKLINE-A1057092A

PATIENT
  Age: 77 Year
  Sex: Male

DRUGS (10)
  1. VENTOLIN [Suspect]
     Indication: TRAUMATIC LUNG INJURY
     Dosage: 2PUFF SEVEN TIMES PER DAY
     Route: 055
     Dates: start: 200903, end: 20140102
  2. ADVAIR [Concomitant]
  3. TAMSULOSIN [Concomitant]
  4. LOSARTAN [Concomitant]
  5. GLIMEPIRIDE [Concomitant]
  6. FUROSEMIDE [Concomitant]
  7. PRAVASTATIN [Concomitant]
  8. LABETALOL [Concomitant]
  9. CALCITROL [Concomitant]
  10. AMLODIPINE [Concomitant]

REACTIONS (3)
  - Drug ineffective [Recovered/Resolved]
  - Overdose [Recovered/Resolved]
  - Product quality issue [Unknown]
